FAERS Safety Report 6641350-8 (Version None)
Quarter: 2010Q1

REPORT INFORMATION
  Report Type: 
  Country: None (occurrence: None)
  Receive Date: 20100318
  Receipt Date: 20100308
  Transmission Date: 20100710
  Serious: Yes (Hospitalization, Other)
  Sender: FDA-Public Use
  Company Number: US-ELI_LILLY_AND_COMPANY-US200902002184

PATIENT
  Age: 79 Year
  Sex: Female

DRUGS (6)
  1. CYMBALTA [Suspect]
     Indication: PAIN
     Dosage: 30 MG, DAILY (1/D)
     Dates: start: 20081218
  2. CYMBALTA [Suspect]
     Dosage: 1 D/F, UNK
  3. PERCOCET [Concomitant]
  4. FENTANYL [Concomitant]
     Route: 062
  5. OXYCONTIN [Concomitant]
  6. ARICEPT [Concomitant]

REACTIONS (15)
  - ANXIETY [None]
  - CEREBROVASCULAR ACCIDENT [None]
  - CHEST PAIN [None]
  - DEMENTIA [None]
  - DEMENTIA ALZHEIMER'S TYPE [None]
  - DEPRESSION [None]
  - DISORIENTATION [None]
  - FALL [None]
  - GAIT DISTURBANCE [None]
  - HALLUCINATION [None]
  - HERNIA [None]
  - INTERVERTEBRAL DISC DISORDER [None]
  - OVERDOSE [None]
  - PAIN [None]
  - WRIST FRACTURE [None]
